FAERS Safety Report 4901570-7 (Version None)
Quarter: 2006Q1

REPORT INFORMATION
  Report Type: 
  Country: None (occurrence: None)
  Receive Date: 20060206
  Receipt Date: 20050405
  Transmission Date: 20060701
  Serious: No
  Sender: FDA-Public Use
  Company Number: US-BRISTOL-MYERS SQUIBB COMPANY-12924882

PATIENT
  Age: 64 Year
  Sex: Male

DRUGS (2)
  1. PACLITAXEL [Suspect]
     Dates: start: 20050315, end: 20050315
  2. CARBOPLATIN [Concomitant]
     Dates: start: 20050315, end: 20050315

REACTIONS (1)
  - ADVERSE DRUG REACTION [None]
